FAERS Safety Report 19989708 (Version 1)
Quarter: 2021Q4

REPORT INFORMATION
  Report Type: Spontaneous
  Country: US (occurrence: US)
  Receive Date: 20211025
  Receipt Date: 20211025
  Transmission Date: 20220303
  Serious: Yes (Hospitalization, Other)
  Sender: FDA-Public Use
  Company Number: US-APOTEX-2021AP044580

PATIENT
  Age: 9 Month
  Sex: Male

DRUGS (1)
  1. FENTANYL TRANSDERMAL SYSTEM [Suspect]
     Active Substance: FENTANYL
     Indication: Product used for unknown indication
     Dosage: UNK
     Route: 048

REACTIONS (11)
  - Hydrocephalus [Recovering/Resolving]
  - Cytotoxic oedema [Recovering/Resolving]
  - Hypoxia [Recovering/Resolving]
  - Hypothermia [Recovering/Resolving]
  - Toxicity to various agents [Recovering/Resolving]
  - Oxygen saturation decreased [Recovering/Resolving]
  - Lethargy [Recovering/Resolving]
  - Hypoglycaemia [Recovering/Resolving]
  - Drug level increased [Recovering/Resolving]
  - Accidental exposure to product by child [Unknown]
  - Depressed level of consciousness [Recovering/Resolving]
